FAERS Safety Report 5493523-8 (Version None)
Quarter: 2007Q4

REPORT INFORMATION
  Report Type: 
  Country: None (occurrence: None)
  Receive Date: 20071023
  Receipt Date: 20071019
  Transmission Date: 20080405
  Serious: Yes (Hospitalization)
  Sender: FDA-Public Use
  Company Number: GR-SHR-GR-2007-033728

PATIENT
  Age: 29 Year
  Sex: Female

DRUGS (5)
  1. ARVEKAP [Suspect]
     Indication: ENDOMETRIOSIS
     Dosage: 3.75 MG, 1 DF 1X/MONTH
     Route: 030
     Dates: start: 20060901, end: 20060901
  2. ARVEKAP [Suspect]
     Dosage: 11.25 MG, 1 DF 1X/3 MNTHS
     Route: 030
     Dates: start: 20061001, end: 20061001
  3. GYNOFEN 35 [Suspect]
     Indication: ENDOMETRIOSIS
     Route: 048
     Dates: start: 20060314, end: 20060319
  4. YASMIN [Suspect]
     Indication: ENDOMETRIOSIS
     Dosage: 1 DF, 21D/28D
     Route: 048
     Dates: start: 20060319, end: 20060401
  5. YASMIN [Suspect]
     Dosage: 1 DF, 21D/28D
     Route: 048
     Dates: start: 20060401, end: 20060401

REACTIONS (8)
  - ARTHRALGIA [None]
  - FATIGUE [None]
  - HEADACHE [None]
  - HYPOAESTHESIA [None]
  - NAUSEA [None]
  - PAIN IN EXTREMITY [None]
  - TACHYCARDIA [None]
  - VOMITING [None]
